FAERS Safety Report 15981750 (Version 2)
Quarter: 2019Q1

REPORT INFORMATION
  Report Type: Spontaneous
  Country: JP (occurrence: JP)
  Receive Date: 20190219
  Receipt Date: 20190222
  Transmission Date: 20190418
  Serious: Yes (Other)
  Sender: FDA-Public Use
  Company Number: JP-PFIZER INC-2019069471

PATIENT
  Age: 51 Year
  Sex: Male

DRUGS (5)
  1. 5-FU [Concomitant]
     Active Substance: FLUOROURACIL
     Dosage: 400 MG/M2, CYCLIC (DAYS 1, 2)
     Route: 040
  2. LEVOLEUCOVORIN CALCIUM. [Concomitant]
     Active Substance: LEVOLEUCOVORIN CALCIUM
     Dosage: 100 MG/M2, CYCLIC (DAYS 1, 2)
  3. OXALIPLATIN. [Suspect]
     Active Substance: OXALIPLATIN
     Dosage: 100 MG/M2, CYCLIC (DAY 1)
  4. 5-FU [Concomitant]
     Active Substance: FLUOROURACIL
     Dosage: 600 MG/M2, CYCLIC (DAYS 1, 2)
     Route: 042
  5. BEVACIZUMAB. [Concomitant]
     Active Substance: BEVACIZUMAB
     Dosage: 5 MG/KG, CYCLIC (DAY 1 AT 2-WEEK INTERVALS)

REACTIONS (3)
  - Splenomegaly [Unknown]
  - Stomal varices [Unknown]
  - Portal hypertension [Unknown]
